FAERS Safety Report 13774465 (Version 1)
Quarter: 2017Q3

REPORT INFORMATION
  Report Type: Spontaneous
  Country: US (occurrence: US)
  Receive Date: 20170720
  Receipt Date: 20170720
  Transmission Date: 20171127
  Serious: Yes (Other)
  Sender: FDA-Public Use
  Company Number: None

PATIENT
  Age: 27 Year
  Sex: Female
  Weight: 59.85 kg

DRUGS (4)
  1. SYNTHROID [Concomitant]
     Active Substance: LEVOTHYROXINE SODIUM
  2. DHA [Concomitant]
     Active Substance: DIETARY SUPPLEMENT
  3. CITRINATAL ASSURE [Concomitant]
  4. METHADONE [Suspect]
     Active Substance: METHADONE HYDROCHLORIDE
     Indication: DRUG DEPENDENCE
     Dosage: ?          OTHER STRENGTH:MG;QUANTITY:1 BOTTLE RED LIQUID;?
     Route: 048
     Dates: start: 20150803, end: 20170720

REACTIONS (2)
  - Drug screen negative [None]
  - Exposure during pregnancy [None]

NARRATIVE: CASE EVENT DATE: 20170405
